FAERS Safety Report 12202654 (Version 1)
Quarter: 2016Q1

REPORT INFORMATION
  Report Type: Spontaneous
  Country: GB (occurrence: GB)
  Receive Date: 20160322
  Receipt Date: 20160322
  Transmission Date: 20160526
  Serious: Yes (Other)
  Sender: FDA-Public Use
  Company Number: GB-009507513-1603GBR008197

PATIENT
  Sex: Male

DRUGS (1)
  1. TEMODAL [Suspect]
     Active Substance: TEMOZOLOMIDE
     Route: 048

REACTIONS (7)
  - Haemoglobin decreased [Unknown]
  - Nausea [Unknown]
  - Visual impairment [Unknown]
  - Glioblastoma [Unknown]
  - Muscular weakness [Unknown]
  - Fatigue [Unknown]
  - Dizziness [Unknown]
